FAERS Safety Report 17971223 (Version 1)
Quarter: 2020Q3

REPORT INFORMATION
  Report Type: Spontaneous
  Country: CN (occurrence: CN)
  Receive Date: 20200701
  Receipt Date: 20200701
  Transmission Date: 20201103
  Serious: Yes (Other)
  Sender: FDA-Public Use
  Company Number: CN-ASTRAZENECA-2020SE75013

PATIENT
  Age: 56 Year
  Sex: Female

DRUGS (1)
  1. CRESTOR [Suspect]
     Active Substance: ROSUVASTATIN CALCIUM
     Indication: CAROTID ARTERY DISEASE
     Route: 048
     Dates: start: 2018, end: 20200519

REACTIONS (1)
  - Metastases to central nervous system [Recovering/Resolving]
